FAERS Safety Report 7554502-X (Version None)
Quarter: 2011Q2

REPORT INFORMATION
  Report Type: 
  Country: None (occurrence: None)
  Receive Date: 20110617
  Receipt Date: 20110609
  Transmission Date: 20111010
  Serious: Yes (Hospitalization, Other)
  Sender: FDA-Public Use
  Company Number: B0724541A

PATIENT
  Age: 75 Year
  Sex: Male

DRUGS (2)
  1. MADOPAR [Concomitant]
     Dates: start: 20110601
  2. PAXIL [Suspect]
     Indication: APATHY
     Dosage: 20MG PER DAY
     Route: 048
     Dates: start: 20110501

REACTIONS (1)
  - PARKINSONISM [None]
